FAERS Safety Report 4641247-9 (Version None)
Quarter: 2005Q2

REPORT INFORMATION
  Report Type: 
  Country: None (occurrence: None)
  Receive Date: 20050421
  Receipt Date: 20050414
  Transmission Date: 20051028
  Serious: Yes (Hospitalization)
  Sender: FDA-Public Use
  Company Number: DE-JNJFOC-20050304036

PATIENT

DRUGS (11)
  1. DURAGESIC-100 [Suspect]
     Indication: PAIN
     Route: 062
  2. LYRICA [Suspect]
     Indication: PAIN
     Route: 049
  3. BORTEZOMIB [Concomitant]
     Indication: MULTIPLE MYELOMA
     Route: 042
  4. ENDOXAN [Concomitant]
     Indication: MULTIPLE MYELOMA
     Route: 049
  5. PREDNISOLONE [Concomitant]
     Indication: MULTIPLE MYELOMA
     Route: 065
  6. THEOPHYLLINE [Concomitant]
     Route: 049
  7. TOREM [Concomitant]
     Indication: RENAL FAILURE
     Route: 049
  8. DELIX [Concomitant]
     Route: 049
  9. ISOKET RETARD [Concomitant]
     Route: 049
  10. BELOC ZOK MITE [Concomitant]
     Route: 049
  11. FLUIMUCIL LONG [Concomitant]
     Route: 049

REACTIONS (2)
  - DYSPNOEA [None]
  - PNEUMONIA [None]
